FAERS Safety Report 4788199-9 (Version None)
Quarter: 2005Q4

REPORT INFORMATION
  Report Type: 
  Country: None (occurrence: None)
  Receive Date: 20051003
  Receipt Date: 20050915
  Transmission Date: 20060501
  Serious: Yes (Death)
  Sender: FDA-Public Use
  Company Number: 215894

PATIENT
  Age: 72 Year
  Sex: Male

DRUGS (6)
  1. RITUXAN [Suspect]
     Indication: DIFFUSE LARGE B-CELL LYMPHOMA
     Dosage: 600 MG, UNK; INTRAVENOUS
     Route: 042
     Dates: start: 20050611, end: 20050611
  2. PACKED RED BLOOD CELL TRANSFUSION (BLOOD CELLS, RED) [Concomitant]
  3. ADONA (CARBAZOCHROME SODIUM SULFONATE) [Concomitant]
  4. TRANEXAMIC ACID [Concomitant]
  5. OMEPRAZOLE [Concomitant]
  6. SOLU-CORTEF [Concomitant]

REACTIONS (8)
  - DISSEMINATED INTRAVASCULAR COAGULATION [None]
  - GASTROINTESTINAL HAEMORRHAGE [None]
  - GASTROINTESTINAL NEOPLASM [None]
  - GASTROINTESTINAL PERFORATION [None]
  - GENERAL PHYSICAL HEALTH DETERIORATION [None]
  - HAEMODIALYSIS [None]
  - KLEBSIELLA INFECTION [None]
  - SEPSIS [None]
